FAERS Safety Report 17727958 (Version 1)
Quarter: 2020Q2

REPORT INFORMATION
  Report Type: Spontaneous
  Country: DE (occurrence: DE)
  Receive Date: 20200430
  Receipt Date: 20200430
  Transmission Date: 20200714
  Serious: Yes (Congenital Anomaly, Other)
  Sender: FDA-Public Use
  Company Number: DE-TEVA-2020-DE-1227579

PATIENT
  Age: 1 Year
  Sex: Male

DRUGS (5)
  1. OMEPRAZOL [Concomitant]
     Active Substance: OMEPRAZOLE
     Indication: GASTRITIS
     Dosage: 40 MILLIGRAM DAILY; 40 MG
     Route: 064
  2. FOLSAURE [Concomitant]
     Active Substance: FOLIC ACID
     Indication: PROPHYLAXIS OF NEURAL TUBE DEFECT
     Route: 064
  3. DEKRISTOL 20000 [Concomitant]
     Active Substance: CHOLECALCIFEROL
     Indication: VITAMIN D DEFICIENCY
     Dosage: 20000 [I.E./D (1X/WK) ]
     Route: 064
  4. ORENCIA [Suspect]
     Active Substance: ABATACEPT
     Indication: RHEUMATOID ARTHRITIS
     Dosage: 162 [MG/WK ], UNIT DOSE: 125 MG
     Route: 064
     Dates: start: 20190224, end: 20190326
  5. PREDNISOLON [Suspect]
     Active Substance: PREDNISOLONE
     Indication: RHEUMATOID ARTHRITIS
     Dosage: 10 [MG / D (UP TO 5)] / SOMETIMES 10 MG / D, SOMETIMES 5 MG / D, UNIT DOSE: 10 MG
     Route: 064
     Dates: start: 20190224, end: 20191122

REACTIONS (4)
  - Inguinal hernia [Unknown]
  - Foetal exposure during pregnancy [Unknown]
  - Renal aplasia [Not Recovered/Not Resolved]
  - Atrial septal defect [Unknown]
